FAERS Safety Report 8127689-8 (Version None)
Quarter: 2012Q1

REPORT INFORMATION
  Report Type: 
  Country: None (occurrence: None)
  Receive Date: 20120210
  Receipt Date: 20120207
  Transmission Date: 20120608
  Serious: No
  Sender: FDA-Public Use
  Company Number: US-PFIZER INC-2012034546

PATIENT
  Sex: Female
  Weight: 58.957 kg

DRUGS (1)
  1. ADVIL CONGESTION RELIEF [Suspect]
     Indication: SINUS CONGESTION
     Dosage: UNK
     Route: 048
     Dates: start: 20120101

REACTIONS (2)
  - NASAL CONGESTION [None]
  - DRUG INEFFECTIVE [None]
